FAERS Safety Report 8494175-5 (Version None)
Quarter: 2012Q3

REPORT INFORMATION
  Report Type: 
  Country: None (occurrence: None)
  Receive Date: 20120709
  Receipt Date: 20120702
  Transmission Date: 20120928
  Serious: Yes (Hospitalization, Other)
  Sender: FDA-Public Use
  Company Number: PHHY2009CA57000

PATIENT
  Sex: Male

DRUGS (3)
  1. SANDOSTATIN LAR [Suspect]
     Dosage: 40 MG, QMO
     Route: 030
  2. SANDOSTATIN LAR [Suspect]
     Dosage: 30 MG, EVERY FOUR WEEKS
     Route: 030
  3. SANDOSTATIN LAR [Suspect]
     Indication: CARCINOID TUMOUR
     Dosage: 40 MG EVERY 4 WEEKS
     Route: 030
     Dates: start: 20060912

REACTIONS (12)
  - INFECTION [None]
  - WEIGHT DECREASED [None]
  - FATIGUE [None]
  - ANAEMIA [None]
  - BLOOD PRESSURE DECREASED [None]
  - ORAL FUNGAL INFECTION [None]
  - DECREASED APPETITE [None]
  - SUBCUTANEOUS ABSCESS [None]
  - PALLOR [None]
  - ANAL FISTULA [None]
  - FLUID RETENTION [None]
  - HAEMOGLOBIN DECREASED [None]
